FAERS Safety Report 6509038-1 (Version None)
Quarter: 2009Q4

REPORT INFORMATION
  Report Type: 
  Country: None (occurrence: None)
  Receive Date: 20091221
  Receipt Date: 20090902
  Transmission Date: 20100525
  Serious: No
  Sender: FDA-Public Use
  Company Number: US-ASTRAZENECA-2009SE11335

PATIENT
  Sex: Male
  Weight: 117.9 kg

DRUGS (2)
  1. CRESTOR [Suspect]
     Route: 048
     Dates: start: 20060101
  2. CRESTOR [Suspect]
     Route: 048

REACTIONS (1)
  - HEPATIC ENZYME INCREASED [None]
